FAERS Safety Report 4616656-4 (Version None)
Quarter: 2005Q2

REPORT INFORMATION
  Report Type: 
  Country: None (occurrence: None)
  Receive Date: 20050311
  Receipt Date: 20050113
  Transmission Date: 20051028
  Serious: No
  Sender: FDA-Public Use
  Company Number: 2005-00047

PATIENT
  Age: 74 Year
  Sex: Female
  Weight: 77.1 kg

DRUGS (2)
  1. VELCADE [Suspect]
     Indication: METASTASES TO LARYNX
     Dates: start: 20040701
  2. PREVACID [Concomitant]

REACTIONS (2)
  - FATIGUE [None]
  - PARAESTHESIA [None]
